FAERS Safety Report 4873224-7 (Version None)
Quarter: 2006Q1

REPORT INFORMATION
  Report Type: 
  Country: None (occurrence: None)
  Receive Date: 20060105
  Receipt Date: 20051005
  Transmission Date: 20060701
  Serious: Yes (Death, Hospitalization)
  Sender: FDA-Public Use
  Company Number: CA-MERCK-0510USA05302

PATIENT
  Age: 87 Year
  Sex: Female
  Weight: 42 kg

DRUGS (4)
  1. VIOXX [Suspect]
     Indication: ARTHRITIS
     Route: 048
  2. ARICEPT [Concomitant]
     Route: 065
  3. ECOTRIN [Concomitant]
     Route: 065
  4. DIGOXIN [Concomitant]
     Route: 065

REACTIONS (10)
  - ATRIAL FIBRILLATION [None]
  - CARDIAC FAILURE CONGESTIVE [None]
  - CARDIOMEGALY [None]
  - CATHETER SEPSIS [None]
  - DEHYDRATION [None]
  - DEMENTIA ALZHEIMER'S TYPE [None]
  - MALNUTRITION [None]
  - MYOCARDIAL ISCHAEMIA [None]
  - PLEURAL EFFUSION [None]
  - RENAL CYST [None]
